FAERS Safety Report 16593798 (Version 1)
Quarter: 2019Q3

REPORT INFORMATION
  Report Type: Report from Study
  Country: IT (occurrence: IT)
  Receive Date: 20190718
  Receipt Date: 20190718
  Transmission Date: 20191004
  Serious: Yes (Other)
  Sender: FDA-Public Use
  Company Number: IT-GLAXOSMITHKLINE-IT2019128291

PATIENT
  Age: 27 Year
  Sex: Female

DRUGS (1)
  1. ACYCLOVIR. [Suspect]
     Active Substance: ACYCLOVIR
     Indication: HERPES SIMPLEX
     Dosage: 1 DF, CYC
     Route: 003

REACTIONS (2)
  - Periorbital oedema [Recovering/Resolving]
  - Nasal oedema [Recovering/Resolving]

NARRATIVE: CASE EVENT DATE: 20190629
